FAERS Safety Report 15435665 (Version 1)
Quarter: 2018Q3

REPORT INFORMATION
  Report Type: Report from Study
  Country: TR (occurrence: TR)
  Receive Date: 20180927
  Receipt Date: 20180927
  Transmission Date: 20181010
  Serious: Yes (Hospitalization)
  Sender: FDA-Public Use
  Company Number: TR-SA-2018SA216835

PATIENT
  Age: 62 Year
  Sex: Male
  Weight: 45 kg

DRUGS (2)
  1. INSULIN GLARGINE [Suspect]
     Active Substance: INSULIN GLARGINE
     Indication: DIABETES MELLITUS
     Dosage: 12 U, UNK
     Route: 058
     Dates: start: 20180709
  2. INSULIN GLULISINE [Suspect]
     Active Substance: INSULIN GLULISINE
     Indication: DIABETES MELLITUS
     Dosage: 3X4, UNK
     Route: 058
     Dates: start: 20180709

REACTIONS (6)
  - Hyperhidrosis [Not Recovered/Not Resolved]
  - Tremor [Not Recovered/Not Resolved]
  - Hernia repair [Unknown]
  - Blood glucose decreased [Recovered/Resolved]
  - Wrong drug administered [Unknown]
  - Blood glucose decreased [Recovered/Resolved]

NARRATIVE: CASE EVENT DATE: 20180709
